FAERS Safety Report 5773200-6 (Version None)
Quarter: 2008Q2

REPORT INFORMATION
  Report Type: 
  Country: None (occurrence: None)
  Receive Date: 20080613
  Receipt Date: 20080613
  Transmission Date: 20081010
  Serious: Yes (Hospitalization)
  Sender: FDA-Public Use
  Company Number: None

PATIENT
  Age: 28 Year
  Sex: Female
  Weight: 56.6996 kg

DRUGS (1)
  1. VENOFER [Suspect]
     Indication: IRON DEFICIENCY ANAEMIA
     Dosage: 400 MG ONCE IV DRIP
     Route: 041
     Dates: start: 20080512, end: 20080512

REACTIONS (6)
  - ABDOMINAL PAIN [None]
  - BACK PAIN [None]
  - CHEST DISCOMFORT [None]
  - OEDEMA PERIPHERAL [None]
  - PRURITUS [None]
  - SENSATION OF HEAVINESS [None]
